FAERS Safety Report 25788384 (Version 2)
Quarter: 2025Q3

REPORT INFORMATION
  Report Type: Spontaneous
  Country: IN (occurrence: IN)
  Receive Date: 20250910
  Receipt Date: 20250912
  Transmission Date: 20251020
  Serious: No
  Sender: PFIZER
  Company Number: IN-PFIZER INC-PV202400086087

PATIENT
  Age: 43 Year
  Sex: Female
  Weight: 55.1 kg

DRUGS (13)
  1. CRIZOTINIB [Suspect]
     Active Substance: CRIZOTINIB
     Indication: Non-small cell lung cancer metastatic
     Dosage: 250 MG, 2X/DAY (X 6 MONTHS, TWICE DAILY WITH OR WITHOUT FOOD)
     Route: 048
     Dates: start: 20240621
  2. CRIZOTINIB [Suspect]
     Active Substance: CRIZOTINIB
     Dosage: 250 MG, 2X/DAY (X 6 MONTHS, TWICE DAILY WITH OR WITHOUT FOOD)
     Route: 048
     Dates: start: 20240716
  3. CRIZOTINIB [Suspect]
     Active Substance: CRIZOTINIB
     Dosage: 250 MG, 2X/DAY (X 6 MONTHS, TWICE DAILY WITH OR WITHOUT FOOD)
     Route: 048
     Dates: start: 20240802
  4. CRIZOTINIB [Suspect]
     Active Substance: CRIZOTINIB
     Dosage: 250 MG, 2X/DAY (X 6 MONTHS, TWICE DAILY WITH OR WITHOUT FOOD)
     Route: 048
     Dates: start: 20240913
  5. FAMOTIDINE [Concomitant]
     Active Substance: FAMOTIDINE
     Indication: Dyspepsia
  6. METOCLOPRAMIDE HYDROCHLORIDE [Concomitant]
     Active Substance: METOCLOPRAMIDE HYDROCHLORIDE
     Indication: Vomiting
  7. LOPERAMIDE HYDROCHLORIDE [Concomitant]
     Active Substance: LOPERAMIDE HYDROCHLORIDE
     Indication: Diarrhoea
  8. CREMAFFIN PLUS [Concomitant]
     Indication: Constipation
  9. VENUSIA [Concomitant]
  10. CUTISOFT [Concomitant]
     Indication: Rash
  11. CLINDAMYCIN [Concomitant]
     Active Substance: CLINDAMYCIN
     Indication: Rash
  12. CALPOL T [Concomitant]
     Indication: Pain
  13. FEXOFENADINE HYDROCHLORIDE [Concomitant]
     Active Substance: FEXOFENADINE HYDROCHLORIDE
     Indication: Rash pruritic
     Dosage: 120 MG, 2X/DAY (FOR 5 DAYS, THEN AS NEEDED)

REACTIONS (23)
  - Pain [Unknown]
  - Abdominal pain [Unknown]
  - Pruritus [Unknown]
  - Mean platelet volume increased [Unknown]
  - Platelet count decreased [Recovered/Resolved]
  - Monocyte percentage increased [Unknown]
  - Alanine aminotransferase increased [Unknown]
  - Rash [Unknown]
  - Dyspepsia [Unknown]
  - Vomiting [Unknown]
  - Arthritis [Unknown]
  - Nausea [Unknown]
  - Fatigue [Unknown]
  - Eastern Cooperative Oncology Group performance status worsened [Unknown]
  - White blood cell count decreased [Unknown]
  - Neutrophil percentage increased [Unknown]
  - Lymphocyte percentage decreased [Unknown]
  - Lymphocyte count decreased [Unknown]
  - Red blood cell count decreased [Unknown]
  - Haematocrit decreased [Unknown]
  - Aspartate aminotransferase increased [Unknown]
  - Abdominal lymphadenopathy [Unknown]
  - Uterine disorder [Unknown]

NARRATIVE: CASE EVENT DATE: 20240101
